FAERS Safety Report 11547597 (Version 2)
Quarter: 2015Q4

REPORT INFORMATION
  Report Type: Spontaneous
  Country: US (occurrence: US)
  Receive Date: 20150924
  Receipt Date: 20151012
  Transmission Date: 20160304
  Serious: No
  Sender: FDA-Public Use
  Company Number: US-ASTRAZENECA-2015SE88829

PATIENT
  Sex: Female

DRUGS (5)
  1. PULMICORT FLEXHALER [Suspect]
     Active Substance: BUDESONIDE
     Indication: INTERSTITIAL LUNG DISEASE
     Dosage: 180 MCG 1X120 DOSES,ONE PUFF TWO TIMES PER DAY
     Route: 055
     Dates: start: 20150708
  2. PULMICORT FLEXHALER [Suspect]
     Active Substance: BUDESONIDE
     Indication: INTERSTITIAL LUNG DISEASE
     Dosage: 180 MCG 1X120 DOSES,ONE PUFF 3 TIMES PER DAY FOR A WEEK
     Route: 055
  3. PREDNISONE. [Concomitant]
     Active Substance: PREDNISONE
  4. PULMICORT FLEXHALER [Suspect]
     Active Substance: BUDESONIDE
     Indication: COUGH
     Dosage: 180 MCG 1X120 DOSES,ONE PUFF TWO TIMES PER DAY
     Route: 055
     Dates: start: 20150708
  5. PULMICORT FLEXHALER [Suspect]
     Active Substance: BUDESONIDE
     Indication: COUGH
     Dosage: 180 MCG 1X120 DOSES,ONE PUFF 3 TIMES PER DAY FOR A WEEK
     Route: 055

REACTIONS (4)
  - Product quality issue [Unknown]
  - Cough [Unknown]
  - Off label use [Unknown]
  - Product use issue [Unknown]
